FAERS Safety Report 8959561 (Version 1)
Quarter: 2012Q4

REPORT INFORMATION
  Report Type: 
  Country: GT (occurrence: GT)
  Receive Date: 20121212
  Receipt Date: 20121212
  Transmission Date: 20130627
  Serious: Yes (Death, Other)
  Sender: FDA-Public Use
  Company Number: PHHY2012GT110779

PATIENT
  Sex: Female

DRUGS (2)
  1. GLIVEC [Suspect]
     Indication: GASTROINTESTINAL STROMAL TUMOUR
     Dosage: UNK UKN, UNK
  2. MUVETT//TRIMEBUTINE [Concomitant]
     Indication: VOMITING
     Dosage: 50 mg, Q8H
     Route: 048

REACTIONS (6)
  - Electrolyte imbalance [Fatal]
  - Gastrointestinal stromal tumour [Fatal]
  - Malignant neoplasm progression [Fatal]
  - Hypotension [Unknown]
  - Abdominal pain [Unknown]
  - Vomiting [Unknown]
